FAERS Safety Report 4796416-4 (Version None)
Quarter: 2005Q4

REPORT INFORMATION
  Report Type: 
  Country: None (occurrence: None)
  Receive Date: 20051011
  Receipt Date: 20050119
  Transmission Date: 20060501
  Serious: Yes (Hospitalization)
  Sender: FDA-Public Use
  Company Number: 05P-163-0287705-00

PATIENT
  Age: 69 Year
  Sex: Male

DRUGS (10)
  1. TRICOR [Suspect]
     Indication: DYSLIPIDAEMIA
     Dosage: 160 MG, 1 IN 1 D, PER ORAL
     Route: 048
  2. OMEPRAZOLE [Suspect]
     Dosage: 20 MG, 1 IN 1 D, PER ORAL
     Route: 048
     Dates: end: 20041205
  3. SIMVASTATIN [Concomitant]
  4. FISH OIL [Concomitant]
  5. MAGNESIUM [Concomitant]
  6. TOCOPHEROL CONCENTRATE CAP [Concomitant]
  7. ASPIRIN [Concomitant]
  8. ASCORBIC ACID [Concomitant]
  9. OXAZEPAM [Concomitant]
  10. PAROXETINE HCL [Concomitant]

REACTIONS (1)
  - PANCREATITIS ACUTE [None]
